FAERS Safety Report 12073968 (Version 2)
Quarter: 2016Q1

REPORT INFORMATION
  Report Type: Spontaneous
  Country: US (occurrence: US)
  Receive Date: 20160212
  Receipt Date: 20160217
  Transmission Date: 20160526
  Serious: Yes (Other)
  Sender: FDA-Public Use
  Company Number: US-BAYER-2016-024272

PATIENT
  Age: 62 Year
  Sex: Female

DRUGS (3)
  1. CLIMARA PRO [Suspect]
     Active Substance: ESTRADIOL\LEVONORGESTREL
     Indication: MENOPAUSE
     Dosage: 0.045/0.015MG
     Route: 062
     Dates: start: 2006, end: 201601
  2. CLIMARA PRO [Suspect]
     Active Substance: ESTRADIOL\LEVONORGESTREL
     Indication: HOT FLUSH
  3. CLIMARA PRO [Suspect]
     Active Substance: ESTRADIOL\LEVONORGESTREL
     Indication: VULVOVAGINAL DRYNESS

REACTIONS (4)
  - Abdominal pain lower [None]
  - Incorrect drug administration duration [None]
  - Vaginal discharge [None]
  - Postmenopausal haemorrhage [None]

NARRATIVE: CASE EVENT DATE: 201512
